FAERS Safety Report 16681398 (Version 2)
Quarter: 2019Q3

REPORT INFORMATION
  Report Type: Spontaneous
  Country: US (occurrence: US)
  Receive Date: 20190808
  Receipt Date: 20190819
  Transmission Date: 20191004
  Serious: No
  Sender: FDA-Public Use
  Company Number: US-AMGEN-USASP2019122831

PATIENT
  Age: 66 Year
  Sex: Female

DRUGS (3)
  1. ANASTRAZOLE DENK [Concomitant]
     Active Substance: ANASTROZOLE
     Indication: BREAST CANCER
  2. CALCIUM [Concomitant]
     Active Substance: CALCIUM
  3. PROLIA [Suspect]
     Active Substance: DENOSUMAB
     Indication: BONE DISORDER
     Dosage: 60 MILLIGRAM, Q6MO
     Route: 065

REACTIONS (1)
  - Blood calcium decreased [Not Recovered/Not Resolved]
